FAERS Safety Report 15929689 (Version 1)
Quarter: 2019Q1

REPORT INFORMATION
  Report Type: Spontaneous
  Country: BR (occurrence: BR)
  Receive Date: 20190206
  Receipt Date: 20190206
  Transmission Date: 20190417
  Serious: Yes (Other)
  Sender: FDA-Public Use
  Company Number: PHHY2019BR024046

PATIENT
  Age: 45 Year
  Sex: Female

DRUGS (7)
  1. OLANZAPINE. [Suspect]
     Active Substance: OLANZAPINE
     Indication: OBSESSIVE-COMPULSIVE DISORDER
     Route: 065
  2. LITHIUM. [Suspect]
     Active Substance: LITHIUM
     Indication: SUICIDE THREAT
  3. RISPERIDONE. [Suspect]
     Active Substance: RISPERIDONE
     Indication: OBSESSIVE-COMPULSIVE DISORDER
     Dosage: UNK
     Route: 065
  4. TOPIRAMATE. [Suspect]
     Active Substance: TOPIRAMATE
     Indication: SUICIDE THREAT
  5. DIMENHYDRINATE. [Suspect]
     Active Substance: DIMENHYDRINATE
     Indication: PRODUCT USED FOR UNKNOWN INDICATION
     Dosage: 30 CAPSULES, QD
     Route: 065
  6. TOPIRAMATE. [Suspect]
     Active Substance: TOPIRAMATE
     Indication: IMPULSIVE BEHAVIOUR
     Route: 065
  7. LITHIUM. [Suspect]
     Active Substance: LITHIUM
     Indication: IMPULSIVE BEHAVIOUR
     Route: 065

REACTIONS (4)
  - Overdose [Unknown]
  - Drug ineffective [Unknown]
  - Product use in unapproved indication [Unknown]
  - Drug abuse [Unknown]
